FAERS Safety Report 7435798-1 (Version None)
Quarter: 2011Q2

REPORT INFORMATION
  Report Type: 
  Country: None (occurrence: None)
  Receive Date: 20110418
  Receipt Date: 20110401
  Transmission Date: 20111010
  Serious: Yes (Hospitalization)
  Sender: FDA-Public Use
  Company Number: 030917

PATIENT
  Sex: Female

DRUGS (2)
  1. CIMZIA [Suspect]
     Indication: RHEUMATOID ARTHRITIS
     Dosage: 400 MG 1X/2 WEEKS, SUBCUTANEOUS; 200 MG 1X/2 WEEKS, SUBCUTANEOUS; 400 MG 1X/4 WEEKS, SUBCUTANEOUS
     Route: 058
     Dates: start: 20091106, end: 20101101
  2. CIMZIA [Suspect]
     Indication: RHEUMATOID ARTHRITIS
     Dosage: 400 MG 1X/2 WEEKS, SUBCUTANEOUS; 200 MG 1X/2 WEEKS, SUBCUTANEOUS; 400 MG 1X/4 WEEKS, SUBCUTANEOUS
     Route: 058
     Dates: start: 20101102

REACTIONS (1)
  - ENTEROCOLITIS [None]
